FAERS Safety Report 17610357 (Version 6)
Quarter: 2020Q2

REPORT INFORMATION
  Report Type: Report from Study
  Country: FR (occurrence: FR)
  Receive Date: 20200401
  Receipt Date: 20200626
  Transmission Date: 20200713
  Serious: Yes (Hospitalization)
  Sender: FDA-Public Use
  Company Number: FR-ROCHE-2536609

PATIENT
  Age: 43 Year
  Sex: Female
  Weight: 48.5 kg

DRUGS (4)
  1. RITUXIMAB. [Suspect]
     Active Substance: RITUXIMAB
     Indication: B-CELL LYMPHOMA
     Dosage: ON 03/JUN/2017, LAST DOSE OF RITUXIMAB (IV) WAS ADMINISTERED
     Route: 041
     Dates: start: 20160705
  2. TAZOCILLINE [Concomitant]
     Active Substance: PIPERACILLIN SODIUM\TAZOBACTAM SODIUM
     Indication: ABDOMINAL INFECTION
     Route: 065
     Dates: start: 20190926, end: 20191002
  3. RITUXIMAB. [Suspect]
     Active Substance: RITUXIMAB
     Indication: B-CELL LYMPHOMA
     Dosage: ON 19/FEB/2019, RECEIVED MOST RECENT DOSE OF ROTUXIMAB (SUBCUTANEOUS).
     Route: 058
     Dates: start: 20170725
  4. TAZOCILLINE [Concomitant]
     Active Substance: PIPERACILLIN SODIUM\TAZOBACTAM SODIUM
     Route: 065
     Dates: start: 20191031, end: 20191105

REACTIONS (2)
  - Pyoderma gangrenosum [Recovering/Resolving]
  - Abdominal infection [Recovering/Resolving]

NARRATIVE: CASE EVENT DATE: 20191014
